FAERS Safety Report 7266406-0 (Version None)
Quarter: 2011Q1

REPORT INFORMATION
  Report Type: 
  Country: None (occurrence: None)
  Receive Date: 20110131
  Receipt Date: 20110125
  Transmission Date: 20110831
  Serious: Yes (Hospitalization)
  Sender: FDA-Public Use
  Company Number: JP-PFIZER INC-2011018056

PATIENT
  Age: 86 Year
  Sex: Male

DRUGS (4)
  1. LYRICA [Suspect]
     Dosage: 300 MG, DAILY
     Route: 048
     Dates: start: 20100701, end: 20101101
  2. MICARDIS [Concomitant]
     Dosage: 20 MG, DAILY
     Route: 048
  3. ADALAT CC [Concomitant]
     Dosage: 20 MG, DAILY
     Route: 048
  4. FENTANYL [Concomitant]
     Dosage: 3 MG, UNK
     Route: 062

REACTIONS (3)
  - INFECTION [None]
  - PYREXIA [None]
  - NEUTROPHIL COUNT DECREASED [None]
